FAERS Safety Report 5235756-1 (Version None)
Quarter: 2007Q1

REPORT INFORMATION
  Report Type: 
  Country: None (occurrence: None)
  Receive Date: 20070212
  Receipt Date: 20070201
  Transmission Date: 20070707
  Serious: Yes (Other)
  Sender: FDA-Public Use
  Company Number: AU-AVENTIS-200710964GDDC

PATIENT
  Sex: Female

DRUGS (2)
  1. TELFAST                            /01314201/ [Suspect]
     Route: 048
  2. TELFAST                            /01314201/ [Suspect]
     Route: 048

REACTIONS (2)
  - CONVULSION [None]
  - OVERDOSE [None]
